FAERS Safety Report 13018284 (Version 1)
Quarter: 2016Q4

REPORT INFORMATION
  Report Type: Not Available
  Country: US (occurrence: US)
  Receive Date: 20161212
  Receipt Date: 20161212
  Transmission Date: 20170207
  Serious: No
  Sender: FDA-Public Use
  Company Number: US-ANIPHARMA-2016-US-003283

PATIENT
  Age: 46 Year
  Sex: Female

DRUGS (1)
  1. FLUVOXAMINE MALEATE 25 MG [Suspect]
     Active Substance: FLUVOXAMINE MALEATE
     Dosage: 25 MG BEFORE BED
     Route: 048
     Dates: start: 20160509

REACTIONS (5)
  - Palpitations [Not Recovered/Not Resolved]
  - Impaired work ability [Not Recovered/Not Resolved]
  - Irritability [Not Recovered/Not Resolved]
  - Fatigue [Not Recovered/Not Resolved]
  - Amnesia [Unknown]

NARRATIVE: CASE EVENT DATE: 20160509
